FAERS Safety Report 21254115 (Version 1)
Quarter: 2022Q3

REPORT INFORMATION
  Report Type: Spontaneous
  Country: FI (occurrence: FI)
  Receive Date: 20220825
  Receipt Date: 20220825
  Transmission Date: 20221027
  Serious: Yes (Hospitalization, Other)
  Sender: FDA-Public Use
  Company Number: FI-SLATE RUN PHARMACEUTICALS-22FI001277

PATIENT
  Sex: Male

DRUGS (4)
  1. TOLTERODINE TARTRATE [Suspect]
     Active Substance: TOLTERODINE TARTRATE
     Indication: Maternal exposure timing unspecified
     Dosage: GRADUALLY STOPPED
  2. BACLOFEN [Concomitant]
     Active Substance: BACLOFEN
     Indication: Maternal exposure timing unspecified
     Dosage: GRADUALLY STOPPED
  3. TIZANIDINE [Concomitant]
     Active Substance: TIZANIDINE
     Indication: Maternal exposure timing unspecified
     Dosage: GRADUALLY STOPPED
  4. LEVOTHYROXINE [Concomitant]
     Active Substance: LEVOTHYROXINE
     Indication: Maternal exposure timing unspecified
     Dosage: GRADUALLY STOPPED

REACTIONS (4)
  - Foetal growth restriction [Recovered/Resolved]
  - Premature baby [Recovered/Resolved]
  - Apgar score low [Recovered/Resolved]
  - Foetal exposure during pregnancy [Recovered/Resolved]
